FAERS Safety Report 7222849-2 (Version None)
Quarter: 2011Q1

REPORT INFORMATION
  Report Type: 
  Country: None (occurrence: None)
  Receive Date: 20110106
  Receipt Date: 20110106
  Transmission Date: 20110831
  Serious: Yes (Hospitalization)
  Sender: FDA-Public Use
  Company Number: None

PATIENT
  Age: 71 Year
  Sex: Female
  Weight: 111.1313 kg

DRUGS (1)
  1. DARVON [Suspect]
     Indication: PAIN
     Dosage: DARVON GEN 65MG PRN 4-6H ORALLY
     Route: 048
     Dates: start: 20050101, end: 20100101

REACTIONS (3)
  - CHEST DISCOMFORT [None]
  - ATRIAL FIBRILLATION [None]
  - ASTHENIA [None]
